FAERS Safety Report 7798773-3 (Version None)
Quarter: 2011Q4

REPORT INFORMATION
  Report Type: 
  Country: None (occurrence: None)
  Receive Date: 20111006
  Receipt Date: 20110927
  Transmission Date: 20120403
  Serious: Yes (Hospitalization)
  Sender: FDA-Public Use
  Company Number: PHHY2011GB85636

PATIENT
  Age: 88 Year
  Sex: Female

DRUGS (10)
  1. PREDNISOLONE [Concomitant]
     Dosage: 8 MG, QD
  2. CALCIUM CARBONATE [Concomitant]
     Dosage: 1 DF, BID
  3. ACETAMINOPHEN AND CODEINE PHOSPHATE [Concomitant]
     Dosage: 2 DF, QID
  4. BUPRENORPHINE [Suspect]
     Indication: PAIN
     Dosage: 5 UG, UNK
  5. ATORVASTATIN [Concomitant]
     Dosage: 20 MG, QD
  6. TOLTERODINE TARTRATE [Concomitant]
     Dosage: 2 MG, BID
  7. OMEPRAZOLE [Concomitant]
     Dosage: 20 MG, QD
  8. DIAZEPAM [Suspect]
     Indication: INSOMNIA
     Route: 048
  9. MIRTAZAPINE [Concomitant]
     Dosage: 30 MG, QD
  10. PERINDOPRIL ERBUMINE [Concomitant]
     Dosage: 4 MG, QD

REACTIONS (1)
  - DEPRESSED LEVEL OF CONSCIOUSNESS [None]
